FAERS Safety Report 5191634-8 (Version None)
Quarter: 2006Q4

REPORT INFORMATION
  Report Type: 
  Country: None (occurrence: None)
  Receive Date: 20061219
  Receipt Date: 20061128
  Transmission Date: 20070319
  Serious: Yes (Hospitalization)
  Sender: FDA-Public Use
  Company Number: 2006150295

PATIENT
  Sex: Female

DRUGS (6)
  1. VIRACEPT [Suspect]
     Indication: SYSTEMIC ANTIVIRAL TREATMENT
     Dosage: (250 MG), ORAL
     Route: 048
  2. RETROVIR [Suspect]
     Indication: SYSTEMIC ANTIVIRAL TREATMENT
     Dosage: INTRAVENOUS
     Route: 042
     Dates: start: 20020711, end: 20020711
  3. BACTRIM [Concomitant]
  4. IRON (IRON) [Concomitant]
  5. SPASFON (PHLOROGLUCINOL, TRIMETHYLPHLOROGLUCINOL) [Concomitant]
  6. COMBIVIR [Suspect]
     Indication: SYSTEMIC ANTIVIRAL TREATMENT
     Dosage: ORAL
     Route: 048

REACTIONS (2)
  - ANAEMIA MACROCYTIC [None]
  - NEUTROPENIA [None]
